FAERS Safety Report 24828676 (Version 3)
Quarter: 2025Q1

REPORT INFORMATION
  Report Type: Report from Study
  Country: DE (occurrence: DE)
  Receive Date: 20250110
  Receipt Date: 20250214
  Transmission Date: 20250408
  Serious: Yes (Other)
  Sender: EMD SERONO INC
  Company Number: DE-Merck Healthcare KGaA-2025000322

PATIENT
  Age: 18 Year
  Sex: Male

DRUGS (2)
  1. REBIF [Suspect]
     Active Substance: INTERFERON BETA-1A
     Indication: Multiple sclerosis
     Dates: start: 2010, end: 20241031
  2. REBIF [Suspect]
     Active Substance: INTERFERON BETA-1A

REACTIONS (5)
  - Drug intolerance [Unknown]
  - Hypertension [Unknown]
  - Renal-limited thrombotic microangiopathy [Not Recovered/Not Resolved]
  - Influenza like illness [Recovered/Resolved]
  - Leukopenia [Unknown]

NARRATIVE: CASE EVENT DATE: 20100101
